FAERS Safety Report 5842285-0 (Version None)
Quarter: 2008Q3

REPORT INFORMATION
  Report Type: 
  Country: None (occurrence: None)
  Receive Date: 20080812
  Receipt Date: 20080730
  Transmission Date: 20090109
  Serious: Yes (Other)
  Sender: FDA-Public Use
  Company Number: FR-ROCHE-578907

PATIENT
  Sex: Male

DRUGS (4)
  1. CELLCEPT [Suspect]
     Indication: DRUG USE FOR UNKNOWN INDICATION
     Route: 048
  2. PROGRAF [Suspect]
     Indication: DRUG USE FOR UNKNOWN INDICATION
     Route: 048
  3. CORTICOSTEROIDS [Concomitant]
  4. ASPEGIC 325 [Concomitant]

REACTIONS (2)
  - BRONCHIAL HYPERREACTIVITY [None]
  - MULTIPLE ALLERGIES [None]
